FAERS Safety Report 23217594 (Version 1)
Quarter: 2023Q4

REPORT INFORMATION
  Report Type: Spontaneous
  Country: US (occurrence: US)
  Receive Date: 20231122
  Receipt Date: 20231122
  Transmission Date: 20240110
  Serious: Yes (Hospitalization, Other)
  Sender: FDA-Public Use
  Company Number: US-GRANULES-US-2023GRALIT00329

PATIENT
  Age: 7 Month
  Sex: Female

DRUGS (3)
  1. ACETAMINOPHEN [Suspect]
     Active Substance: ACETAMINOPHEN
     Indication: Otitis media acute
     Dosage: 5ML OR 160MG LIQUID PARACETAMOL EVERY 4 HOURS IN TOTAL 99 MG/KG DAILY FOR 5 DAYS
     Route: 065
  2. AZITHROMYCIN [Concomitant]
     Active Substance: AZITHROMYCIN
     Route: 065
  3. IBUPROFEN [Concomitant]
     Active Substance: IBUPROFEN
     Route: 065

REACTIONS (5)
  - Acute hepatic failure [Recovering/Resolving]
  - Hepatotoxicity [Recovering/Resolving]
  - Toxicity to various agents [Recovering/Resolving]
  - Overdose [Unknown]
  - Off label use [Unknown]
